FAERS Safety Report 7835801-0 (Version None)
Quarter: 2011Q4

REPORT INFORMATION
  Report Type: 
  Country: None (occurrence: None)
  Receive Date: 20111024
  Receipt Date: 20111012
  Transmission Date: 20120403
  Serious: Yes (Hospitalization, Other)
  Sender: FDA-Public Use
  Company Number: US-BAYER-2011-077444

PATIENT
  Age: 30 Year
  Sex: Female

DRUGS (1)
  1. MIRENA [Suspect]
     Indication: CONTRACEPTION
     Dosage: 20 MCG/24HR, UNK
     Route: 015
     Dates: start: 20110601

REACTIONS (11)
  - THROMBOSIS [None]
  - DEPRESSION [None]
  - CRYING [None]
  - ABDOMINAL PAIN [None]
  - PAIN IN EXTREMITY [None]
  - SINUSITIS [None]
  - OEDEMA PERIPHERAL [None]
  - INFECTION [None]
  - ANXIETY [None]
  - MUSCLE SPASMS [None]
  - MEDICAL DEVICE PAIN [None]
